FAERS Safety Report 21404085 (Version 1)
Quarter: 2022Q4

REPORT INFORMATION
  Report Type: Spontaneous
  Country: US (occurrence: None)
  Receive Date: 20221003
  Receipt Date: 20221003
  Transmission Date: 20230113
  Serious: Yes (Hospitalization)
  Sender: FDA-Public Use
  Company Number: None

PATIENT
  Age: 62 Year
  Sex: Male
  Weight: 96.62 kg

DRUGS (18)
  1. CABAZITAXEL [Suspect]
     Active Substance: CABAZITAXEL
     Indication: Prostate cancer
     Dates: start: 20220711
  2. CARBOPLATIN [Suspect]
     Active Substance: CARBOPLATIN
     Indication: Prostate cancer
     Dates: start: 20220711
  3. ATORVASTATIN [Concomitant]
     Active Substance: ATORVASTATIN
     Dates: start: 20190413
  4. BICALUTAMIDE [Concomitant]
     Active Substance: BICALUTAMIDE
     Dates: start: 20220329, end: 20220712
  5. CARVEDILOL [Concomitant]
     Active Substance: CARVEDILOL
     Dates: start: 20200503
  6. CETIRIZINE [Concomitant]
     Active Substance: CETIRIZINE HYDROCHLORIDE
     Dates: start: 20190701
  7. DIGOXIN [Concomitant]
     Active Substance: DIGOXIN
     Dates: start: 20211117
  8. FLUTICASONE [Concomitant]
     Active Substance: FLUTICASONE
     Dates: start: 20161205
  9. FUROSEMIDE [Concomitant]
     Active Substance: FUROSEMIDE
     Dates: start: 20190508
  10. VITAMINS [Concomitant]
     Active Substance: VITAMINS
     Dates: start: 20220628
  11. RELUGOLIX [Concomitant]
     Active Substance: RELUGOLIX
     Dates: start: 20220608
  12. SACUBITRIL\VALSARTAN [Concomitant]
     Active Substance: SACUBITRIL\VALSARTAN
     Dates: start: 20210610
  13. SPIRONOLACTONE [Concomitant]
     Active Substance: SPIRONOLACTONE
     Dates: start: 20210812
  14. VITAMIN D [Concomitant]
     Active Substance: VITAMIN D NOS
     Dates: start: 20180307
  15. WARFARIN [Concomitant]
     Active Substance: WARFARIN
     Dates: start: 20220512
  16. ONDANSETRON [Concomitant]
     Active Substance: ONDANSETRON
     Dates: start: 20220711
  17. PREDNISONE [Concomitant]
     Active Substance: PREDNISONE
     Dates: start: 20220711
  18. PROCHLORPERAZINE MALEATE [Concomitant]
     Active Substance: PROCHLORPERAZINE MALEATE
     Dates: start: 20220711

REACTIONS (6)
  - Dyspnoea [None]
  - Arrhythmia [None]
  - Hypokalaemia [None]
  - Hypomagnesaemia [None]
  - Hyperlipidaemia [None]
  - Hypotension [None]

NARRATIVE: CASE EVENT DATE: 20220924
